FAERS Safety Report 4662240-6 (Version None)
Quarter: 2005Q2

REPORT INFORMATION
  Report Type: 
  Country: None (occurrence: None)
  Receive Date: 20050512
  Receipt Date: 20050421
  Transmission Date: 20051028
  Serious: Yes (Other)
  Sender: FDA-Public Use
  Company Number: USA050496279

PATIENT
  Age: 79 Year
  Sex: Female

DRUGS (2)
  1. EVISTA [Suspect]
     Dates: start: 20040101
  2. CALCIUM GLUCONATE [Concomitant]

REACTIONS (1)
  - SPINAL FRACTURE [None]
